APPROVED DRUG PRODUCT: PRIMAXIN
Active Ingredient: CILASTATIN SODIUM; IMIPENEM
Strength: EQ 500MG BASE/VIAL;500MG/VIAL
Dosage Form/Route: POWDER;INTRAVENOUS
Application: N050587 | Product #002 | TE Code: AP
Applicant: MERCK AND CO INC
Approved: Nov 26, 1985 | RLD: Yes | RS: Yes | Type: RX